FAERS Safety Report 7166845-2 (Version None)
Quarter: 2010Q4

REPORT INFORMATION
  Report Type: 
  Country: None (occurrence: None)
  Receive Date: 20101216
  Receipt Date: 20101206
  Transmission Date: 20110411
  Serious: Yes (Life-Threatening)
  Sender: FDA-Public Use
  Company Number: FR-JNJFOC-20101204454

PATIENT
  Sex: Male

DRUGS (8)
  1. TOPALGIC [Suspect]
     Indication: CHEST PAIN
     Route: 048
  2. TOPALGIC [Suspect]
     Route: 048
  3. ACETAMINOPHEN [Suspect]
     Route: 048
  4. ACETAMINOPHEN [Suspect]
     Indication: CHEST PAIN
     Route: 048
  5. LAROXYL [Interacting]
     Indication: IMPULSIVE BEHAVIOUR
     Route: 048
  6. LAROXYL [Interacting]
     Route: 048
  7. VERATRAN [Interacting]
     Indication: ANXIETY
     Route: 048
  8. VERATRAN [Interacting]
     Route: 048

REACTIONS (6)
  - COMA [None]
  - DRUG INTERACTION [None]
  - EJECTION FRACTION DECREASED [None]
  - MULTIPLE DRUG OVERDOSE INTENTIONAL [None]
  - NERVOUS SYSTEM DISORDER [None]
  - VENTRICULAR DYSFUNCTION [None]
